FAERS Safety Report 12158759 (Version 1)
Quarter: 2016Q1

REPORT INFORMATION
  Report Type: Spontaneous
  Country: US (occurrence: US)
  Receive Date: 20160308
  Receipt Date: 20160308
  Transmission Date: 20160526
  Serious: No
  Sender: FDA-Public Use
  Company Number: US-JNJFOC-20160114228

PATIENT
  Age: 50 Year
  Sex: Female
  Weight: 68.04 kg

DRUGS (2)
  1. ZOFRAN [Concomitant]
     Active Substance: ONDANSETRON HYDROCHLORIDE
     Indication: NAUSEA
     Route: 065
  2. TYLENOL EXTRA STRENGTH [Suspect]
     Active Substance: ACETAMINOPHEN
     Indication: PAIN
     Route: 048

REACTIONS (5)
  - Product taste abnormal [Unknown]
  - Product physical issue [Unknown]
  - Product colour issue [Unknown]
  - Nausea [Recovering/Resolving]
  - Somnolence [Recovering/Resolving]
